FAERS Safety Report 7742978-4 (Version None)
Quarter: 2011Q3

REPORT INFORMATION
  Report Type: 
  Country: None (occurrence: None)
  Receive Date: 20110912
  Receipt Date: 20110905
  Transmission Date: 20111222
  Serious: Yes (Death, Hospitalization)
  Sender: FDA-Public Use
  Company Number: JP-JNJFOC-20110903859

PATIENT
  Age: 29 Year

DRUGS (8)
  1. RISPERDAL CONSTA [Suspect]
     Indication: SCHIZOPHRENIA
     Route: 030
     Dates: end: 20110831
  2. ZOTEPINE [Suspect]
     Indication: SCHIZOPHRENIA
     Route: 048
  3. VALPROATE SODIUM [Concomitant]
     Route: 048
  4. LITHIUM CARBONATE [Concomitant]
     Route: 048
  5. LONASEN [Suspect]
     Indication: SCHIZOPHRENIA
     Route: 048
  6. RISPERIDONE [Suspect]
     Indication: SCHIZOPHRENIA
     Route: 065
  7. RISPERDAL CONSTA [Suspect]
     Route: 030
     Dates: start: 20110901
  8. ACTOS [Concomitant]
     Indication: DIABETES MELLITUS
     Route: 048

REACTIONS (1)
  - ACUTE MYOCARDIAL INFARCTION [None]
